FAERS Safety Report 8620765-2 (Version None)
Quarter: 2012Q3

REPORT INFORMATION
  Report Type: 
  Country: None (occurrence: None)
  Receive Date: 20120824
  Receipt Date: 20120214
  Transmission Date: 20120928
  Serious: No
  Sender: FDA-Public Use
  Company Number: CA-ROCHE-1040446

PATIENT
  Sex: Female

DRUGS (4)
  1. CLONAZEPAM [Suspect]
     Indication: INSOMNIA RELATED TO ANOTHER MENTAL CONDITION
  2. VESANOID [Suspect]
     Indication: ACNE
  3. DIAZEPAM [Suspect]
     Indication: INSOMNIA RELATED TO ANOTHER MENTAL CONDITION
  4. ISOTRETINOIN [Suspect]
     Indication: ACNE

REACTIONS (1)
  - PREGNANCY [None]
